FAERS Safety Report 21029244 (Version 14)
Quarter: 2023Q2

REPORT INFORMATION
  Report Type: Report from Study
  Country: US (occurrence: US)
  Receive Date: 20220630
  Receipt Date: 20230512
  Transmission Date: 20230722
  Serious: Yes (Hospitalization, Other)
  Sender: FDA-Public Use
  Company Number: NVSC2022US148981

PATIENT
  Sex: Male
  Weight: 105.22 kg

DRUGS (15)
  1. TREPROSTINIL [Suspect]
     Active Substance: TREPROSTINIL
     Indication: Pulmonary arterial hypertension
     Dosage: 8 NG/KG/MIN, CONT (CONCENTRATION: 2.5 MG/ML)
     Route: 058
     Dates: start: 20220613
  2. TREPROSTINIL [Suspect]
     Active Substance: TREPROSTINIL
     Dosage: 75 NG/KG/MIN, CONT (CONCENTRATION:5 MG/ML))
     Route: 058
     Dates: start: 20220613
  3. TREPROSTINIL [Suspect]
     Active Substance: TREPROSTINIL
     Dosage: 13 NG/KG/MIN, CONT, CONCENTRATION: 2.5 MG/ML)
     Route: 058
  4. TREPROSTINIL [Suspect]
     Active Substance: TREPROSTINIL
     Dosage: 22 NG/KG/MIN, CONT, CONCENTRATION: 2.5 MG/ML)
     Route: 058
  5. TREPROSTINIL [Suspect]
     Active Substance: TREPROSTINIL
     Dosage: 30 NG/KG/MIN, CONT (CONCENTRATION:5 MG/ML))
     Route: 058
  6. TREPROSTINIL [Suspect]
     Active Substance: TREPROSTINIL
     Dosage: 36 NG/KG/MIN, CONT (CONCENTRATION:5 MG/ML))
     Route: 058
  7. TREPROSTINIL [Suspect]
     Active Substance: TREPROSTINIL
     Dosage: 50 NG/KG/MIN, CONT (CONCENTRATION:5 MG/ML))
     Route: 058
  8. TREPROSTINIL [Suspect]
     Active Substance: TREPROSTINIL
     Dosage: 72 NG/KG/MIN, CONT (CONCENTRATION:5 MG/ML))
     Route: 058
  9. TREPROSTINIL [Suspect]
     Active Substance: TREPROSTINIL
     Dosage: 75 NG/KG/MIN, CONT (CONCENTRATION:5 MG/ML))
     Route: 058
  10. TREPROSTINIL [Suspect]
     Active Substance: TREPROSTINIL
     Dosage: 77 NG/KG/MIN CONT (CONCENTRATION:5 MG/ML))
     Route: 058
  11. TREPROSTINIL [Suspect]
     Active Substance: TREPROSTINIL
     Dosage: 74 NG/KG/MIN CONT (CONCENTRATION:5 MG/ML))
     Route: 058
  12. UPTRAVI [Concomitant]
     Active Substance: SELEXIPAG
     Indication: Product used for unknown indication
     Dosage: UNK
     Route: 065
     Dates: end: 202206
  13. ADEMPAS [Concomitant]
     Active Substance: RIOCIGUAT
     Indication: Product used for unknown indication
     Dosage: UNK
     Route: 065
  14. OPSUMIT [Concomitant]
     Active Substance: MACITENTAN
     Indication: Product used for unknown indication
     Dosage: UNK
     Route: 065
  15. REMODULIN [Concomitant]
     Active Substance: TREPROSTINIL
     Indication: Product used for unknown indication
     Dosage: UNK
     Route: 065
     Dates: start: 20230206

REACTIONS (12)
  - Haematochezia [Unknown]
  - Illness [Unknown]
  - Diabetes mellitus [Unknown]
  - COVID-19 [Unknown]
  - Cough [Not Recovered/Not Resolved]
  - Liver disorder [Unknown]
  - Hypertension [Unknown]
  - Infusion site vesicles [Recovering/Resolving]
  - Diarrhoea [Unknown]
  - Infusion site pain [Recovering/Resolving]
  - Infusion site erythema [Unknown]
  - Infusion site haemorrhage [Unknown]
